FAERS Safety Report 5798124-X (Version None)
Quarter: 2008Q2

REPORT INFORMATION
  Report Type: 
  Country: None (occurrence: None)
  Receive Date: 20080630
  Receipt Date: 20080619
  Transmission Date: 20081010
  Serious: Yes (Hospitalization, Other)
  Sender: FDA-Public Use
  Company Number: OMPQ-NO-08065-0391

PATIENT
  Age: 63 Year
  Sex: Male

DRUGS (8)
  1. OMNIPAQUE 140 [Suspect]
     Indication: ANGINA PECTORIS
     Dosage: NR, SINGLE DOSE, INTRACARDIAC
     Route: 016
     Dates: start: 20080502, end: 20080502
  2. CARVEDILOL (ARTIST) [Concomitant]
  3. RABEPRAZOLE SODIUM (PARIET) [Concomitant]
  4. ACETYLSALICYLIC ACID (BAYASPIRIN) [Concomitant]
  5. CARBOCISTEINE (MUCODYNE) [Concomitant]
  6. SEVELAMER HYDROCHLORIDE (RENAGEL) [Concomitant]
  7. ZOLPIDEM [Concomitant]
  8. WARFARIN SODIUM [Concomitant]

REACTIONS (6)
  - CYTOMEGALOVIRUS INFECTION [None]
  - EPSTEIN-BARR VIRUS INFECTION [None]
  - HERPES ZOSTER [None]
  - PYREXIA [None]
  - STEVENS-JOHNSON SYNDROME [None]
  - THIRST [None]
